FAERS Safety Report 12289505 (Version 1)
Quarter: 2016Q2

REPORT INFORMATION
  Report Type: Spontaneous
  Country: US (occurrence: None)
  Receive Date: 20160420
  Receipt Date: 20160420
  Transmission Date: 20160815
  Serious: Yes (Hospitalization)
  Sender: FDA-Public Use
  Company Number: None

PATIENT
  Age: 71 Year
  Sex: Male
  Weight: 74.84 kg

DRUGS (10)
  1. OSTEO-BI FLEX [Concomitant]
  2. FUROSEMIDE. [Concomitant]
     Active Substance: FUROSEMIDE
  3. PROTONIX [Concomitant]
     Active Substance: PANTOPRAZOLE SODIUM
  4. XANAX [Concomitant]
     Active Substance: ALPRAZOLAM
  5. LOW DOSE ASPIRIN [Concomitant]
     Active Substance: ASPIRIN
  6. LEXAPRO [Concomitant]
     Active Substance: ESCITALOPRAM OXALATE
  7. ARICEPT [Suspect]
     Active Substance: DONEPEZIL HYDROCHLORIDE
     Indication: DEMENTIA ALZHEIMER^S TYPE
     Route: 048
     Dates: start: 20160319, end: 20160325
  8. IRON SUPPLEMENT [Concomitant]
     Active Substance: IRON
  9. VITAMINS [Concomitant]
     Active Substance: VITAMINS
  10. CENTRUM SILVER [Concomitant]
     Active Substance: MINERALS\VITAMINS

REACTIONS (1)
  - Urinary tract infection [None]

NARRATIVE: CASE EVENT DATE: 20160324
